FAERS Safety Report 4979287-2 (Version None)
Quarter: 2006Q2

REPORT INFORMATION
  Report Type: 
  Country: None (occurrence: None)
  Receive Date: 20060418
  Receipt Date: 20060330
  Transmission Date: 20061013
  Serious: Yes (Hospitalization)
  Sender: FDA-Public Use
  Company Number: AU200512000697

PATIENT
  Age: 42 Year
  Sex: Male
  Weight: 82 kg

DRUGS (16)
  1. OLANZAPINE [Suspect]
     Indication: BIPOLAR DISORDER
     Dosage: SEE IMAGE, ORAL
     Route: 048
     Dates: start: 20041218, end: 20041218
  2. OLANZAPINE [Suspect]
     Indication: BIPOLAR DISORDER
     Dosage: SEE IMAGE, ORAL
     Route: 048
     Dates: start: 20041219, end: 20041221
  3. OLANZAPINE [Suspect]
     Indication: BIPOLAR DISORDER
     Dosage: SEE IMAGE, ORAL
     Route: 048
     Dates: start: 20041222, end: 20041229
  4. OLANZAPINE [Suspect]
     Indication: BIPOLAR DISORDER
     Dosage: SEE IMAGE, ORAL
     Route: 048
     Dates: start: 20041230, end: 20041230
  5. OLANZAPINE [Suspect]
     Indication: BIPOLAR DISORDER
     Dosage: SEE IMAGE, ORAL
     Route: 048
     Dates: start: 20041231, end: 20050107
  6. OLANZAPINE [Suspect]
     Indication: BIPOLAR DISORDER
     Dosage: SEE IMAGE, ORAL
     Route: 048
     Dates: start: 20050624, end: 20050627
  7. OLANZAPINE [Suspect]
     Indication: BIPOLAR DISORDER
     Dosage: SEE IMAGE, ORAL
     Route: 048
     Dates: start: 20050628, end: 20050630
  8. OLANZAPINE [Suspect]
     Indication: BIPOLAR DISORDER
     Dosage: SEE IMAGE, ORAL
     Route: 048
     Dates: start: 20050701, end: 20050705
  9. OLANZAPINE [Suspect]
     Indication: BIPOLAR DISORDER
     Dosage: SEE IMAGE, ORAL
     Route: 048
     Dates: start: 20050706, end: 20050708
  10. OLANZAPINE [Suspect]
     Indication: BIPOLAR DISORDER
     Dosage: SEE IMAGE, ORAL
     Route: 048
     Dates: start: 20050709, end: 20050709
  11. OLANZAPINE [Suspect]
     Indication: BIPOLAR DISORDER
     Dosage: SEE IMAGE, ORAL
     Route: 048
     Dates: start: 20050710, end: 20050710
  12. LITHIUM (LITHIUM) [Concomitant]
  13. COGENTIN [Concomitant]
  14. DIAZEPAM [Concomitant]
  15. TEMAZEPAM [Concomitant]
  16. SALBUTAMOL (SALBUTAMOL) [Concomitant]

REACTIONS (9)
  - AGITATION [None]
  - BACTERAEMIA [None]
  - BALANCE DISORDER [None]
  - CHEST X-RAY ABNORMAL [None]
  - CHILLS [None]
  - COORDINATION ABNORMAL [None]
  - IRRITABILITY [None]
  - PYREXIA [None]
  - TREMOR [None]
